FAERS Safety Report 10533247 (Version 1)
Quarter: 2014Q4

REPORT INFORMATION
  Report Type: Spontaneous
  Country: ZA (occurrence: ZA)
  Receive Date: 20141022
  Receipt Date: 20141022
  Transmission Date: 20150529
  Serious: Yes (Death)
  Sender: FDA-Public Use
  Company Number: ZA-MERCK-1410ZAF008598

PATIENT

DRUGS (3)
  1. CANCIDAS [Suspect]
     Active Substance: CASPOFUNGIN ACETATE
     Dosage: 50 MG, ONCE(DOSE REPORTED AS X1@50 MG
     Dates: start: 20140918
  2. CANCIDAS [Suspect]
     Active Substance: CASPOFUNGIN ACETATE
     Dosage: DOSE REPORTED AS X3@50 MG
     Dates: start: 20140920
  3. CANCIDAS [Suspect]
     Active Substance: CASPOFUNGIN ACETATE
     Dosage: 70 MG, ONCE
     Dates: start: 20140918

REACTIONS (1)
  - Death [Fatal]

NARRATIVE: CASE EVENT DATE: 20140923
